FAERS Safety Report 14719332 (Version 1)
Quarter: 2018Q2

REPORT INFORMATION
  Report Type: Spontaneous
  Country: FR (occurrence: FR)
  Receive Date: 20180405
  Receipt Date: 20180405
  Transmission Date: 20180711
  Serious: Yes (Hospitalization)
  Sender: FDA-Public Use
  Company Number: FR-AXELLIA-001560

PATIENT
  Age: 51 Year
  Sex: Male
  Weight: 51 kg

DRUGS (7)
  1. VANCOMYCIN [Suspect]
     Active Substance: VANCOMYCIN
     Indication: MEDIASTINITIS
     Route: 048
     Dates: start: 20180112, end: 20180123
  2. ZYVOXID [Suspect]
     Active Substance: LINEZOLID
     Indication: MEDIASTINITIS
     Dosage: STRENGTH 600 MG
     Route: 048
     Dates: start: 20180124
  3. TIENAM [Suspect]
     Active Substance: CILASTATIN SODIUM\IMIPENEM
     Indication: MEDIASTINITIS
     Route: 067
     Dates: start: 20180124
  4. PIPERACILLIN/TAZOBACTAM [Suspect]
     Active Substance: PIPERACILLIN SODIUM\TAZOBACTAM SODIUM
     Indication: MEDIASTINITIS
     Route: 042
     Dates: start: 20180112, end: 20180123
  5. GENTAMICINE PANPHARMA [Suspect]
     Active Substance: GENTAMICIN
     Indication: MEDIASTINITIS
     Route: 042
     Dates: start: 20180112, end: 20180123
  6. AMIKACINE MYLAN [Suspect]
     Active Substance: AMIKACIN
     Indication: MEDIASTINITIS
     Route: 042
     Dates: start: 20180124
  7. FLUCONAZOLE ARROW [Suspect]
     Active Substance: FLUCONAZOLE
     Indication: MEDIASTINITIS
     Route: 048
     Dates: start: 20180124

REACTIONS (3)
  - Thrombocytopenia [Recovered/Resolved]
  - Agranulocytosis [Not Recovered/Not Resolved]
  - Anaemia [Not Recovered/Not Resolved]

NARRATIVE: CASE EVENT DATE: 20180226
